FAERS Safety Report 8274449-3 (Version None)
Quarter: 2012Q2

REPORT INFORMATION
  Report Type: 
  Country: None (occurrence: None)
  Receive Date: 20120411
  Receipt Date: 20120329
  Transmission Date: 20120825
  Serious: Yes (Death, Hospitalization)
  Sender: FDA-Public Use
  Company Number: ES-CELGENEUS-144-50794-12033538

PATIENT
  Sex: Male
  Weight: 65 kg

DRUGS (9)
  1. ONDANSETRON [Concomitant]
     Indication: PROPHYLAXIS OF NAUSEA AND VOMITING
     Route: 065
  2. ANTIBACTERIAL [Concomitant]
     Route: 065
  3. ATENOLOL [Concomitant]
     Indication: CARDIOMYOPATHY
     Dosage: 50 MILLIGRAM
     Route: 065
     Dates: start: 20080101
  4. NITROGLYCERIN [Concomitant]
     Indication: CARDIOMYOPATHY
     Dosage: 10 MILLIGRAM
     Route: 065
     Dates: start: 20080101
  5. ANTIFUNGAL [Concomitant]
     Route: 065
  6. ISOSORBIDE MONONITRATE [Concomitant]
     Indication: CARDIOMYOPATHY
     Dosage: 60 MILLIGRAM
     Route: 065
     Dates: start: 20080101
  7. VIDAZA [Suspect]
     Dosage: 50 MILLIGRAM
     Route: 065
  8. ESOMEPRAZOLE MAGNESIUM [Concomitant]
     Indication: PROPHYLAXIS
     Dosage: 20 MILLIGRAM
     Route: 065
     Dates: start: 20080101
  9. ASPIRIN [Concomitant]
     Indication: CARDIOMYOPATHY
     Route: 065
     Dates: start: 20080101

REACTIONS (2)
  - ACUTE MYELOID LEUKAEMIA [None]
  - LOBAR PNEUMONIA [None]
